FAERS Safety Report 5018405-7 (Version None)
Quarter: 2006Q2

REPORT INFORMATION
  Report Type: 
  Country: None (occurrence: None)
  Receive Date: 20060605
  Receipt Date: 20060307
  Transmission Date: 20061013
  Serious: Yes (Other)
  Sender: FDA-Public Use
  Company Number: PHNU2006DE01226

PATIENT
  Sex: Male
  Weight: 176 kg

DRUGS (7)
  1. FORADIL [Suspect]
     Dosage: 1 DF, TID
     Dates: start: 20020101
  2. NEXIUM [Concomitant]
     Dosage: 20 MG, QD
     Route: 048
     Dates: start: 20020101
  3. SPIRIVA [Concomitant]
     Dosage: 18 MG, QD
     Dates: start: 20050101
  4. ALVESCO [Concomitant]
     Dosage: 160 MG, QD
     Dates: start: 20040101
  5. THEOPHYLLINE [Concomitant]
     Dosage: 375 MG/DAY
     Route: 048
     Dates: start: 20030101
  6. BERODUAL [Concomitant]
     Dosage: 1 DF, BID
     Dates: start: 20020101
  7. L-THYROXINE [Concomitant]
     Indication: THYROID OPERATION
     Dosage: 150 UG, QD
     Route: 048

REACTIONS (3)
  - EPISTAXIS [None]
  - GINGIVAL BLEEDING [None]
  - TONGUE HAEMORRHAGE [None]
